FAERS Safety Report 7211888-3 (Version None)
Quarter: 2011Q1

REPORT INFORMATION
  Report Type: 
  Country: None (occurrence: None)
  Receive Date: 20110106
  Receipt Date: 20101229
  Transmission Date: 20110831
  Serious: Yes (Hospitalization)
  Sender: FDA-Public Use
  Company Number: US-BIOGENIDEC-2010BI043724

PATIENT
  Age: 39 Year
  Sex: Male

DRUGS (2)
  1. AVONEX [Suspect]
     Indication: MULTIPLE SCLEROSIS
     Route: 030
     Dates: start: 20100106
  2. AVONEX [Suspect]
     Route: 030
     Dates: start: 20011013, end: 20020901

REACTIONS (2)
  - SALMONELLOSIS [None]
  - INFLUENZA LIKE ILLNESS [None]
